FAERS Safety Report 8561480-3 (Version None)
Quarter: 2012Q3

REPORT INFORMATION
  Report Type: 
  Country: None (occurrence: None)
  Receive Date: 20120802
  Receipt Date: 20120717
  Transmission Date: 20120928
  Serious: No
  Sender: FDA-Public Use
  Company Number: US-ASTRAZENECA-2012SE49768

PATIENT
  Age: 31 Year
  Sex: Male
  Weight: 63.5 kg

DRUGS (2)
  1. NEXIUM [Suspect]
     Indication: ABDOMINAL DISCOMFORT
     Route: 048
  2. NEXIUM [Suspect]
     Indication: CHEST DISCOMFORT
     Route: 048

REACTIONS (5)
  - CHEST DISCOMFORT [None]
  - GALLBLADDER DISORDER [None]
  - OFF LABEL USE [None]
  - ABDOMINAL DISCOMFORT [None]
  - MUSCLE SPASMS [None]
